FAERS Safety Report 13455838 (Version 1)
Quarter: 2017Q2

REPORT INFORMATION
  Report Type: Spontaneous
  Country: US (occurrence: US)
  Receive Date: 20170419
  Receipt Date: 20170419
  Transmission Date: 20170830
  Serious: Yes (Hospitalization, Other)
  Sender: FDA-Public Use
  Company Number: US-GLAXOSMITHKLINE-US2017GSK055520

PATIENT
  Sex: Female

DRUGS (2)
  1. BREO ELLIPTA [Suspect]
     Active Substance: FLUTICASONE FUROATE\VILANTEROL TRIFENATATE
     Indication: ASTHMA
     Dosage: UNK
     Dates: start: 201512, end: 201606
  2. BREO ELLIPTA [Suspect]
     Active Substance: FLUTICASONE FUROATE\VILANTEROL TRIFENATATE
     Indication: CHRONIC OBSTRUCTIVE PULMONARY DISEASE

REACTIONS (9)
  - Loss of personal independence in daily activities [Unknown]
  - Hospitalisation [Unknown]
  - Asthma [Unknown]
  - Emphysema [Unknown]
  - Lung disorder [Unknown]
  - Total lung capacity decreased [Unknown]
  - Choking sensation [Unknown]
  - Dyspnoea [Unknown]
  - Condition aggravated [Unknown]
